FAERS Safety Report 10395713 (Version 2)
Quarter: 2015Q2

REPORT INFORMATION
  Report Type: Spontaneous
  Country: KR (occurrence: KR)
  Receive Date: 20140820
  Receipt Date: 20150528
  Transmission Date: 20150821
  Serious: Yes (Death, Other)
  Sender: FDA-Public Use
  Company Number: KR-TEVA-502851ISR

PATIENT
  Age: 15 Year
  Sex: Male

DRUGS (4)
  1. METHOTREXATE [Suspect]
     Active Substance: METHOTREXATE
     Dosage: 2 SESSIONS OF HIGH-DOSE SYSTEMIC METHOTREXATE
  2. METHOTREXATE [Suspect]
     Active Substance: METHOTREXATE
     Indication: BURKITT^S LEUKAEMIA
     Route: 037
  3. CYTARABINE. [Concomitant]
     Active Substance: CYTARABINE
     Indication: BURKITT^S LEUKAEMIA
     Route: 037
  4. HYDROCORTISONE. [Concomitant]
     Active Substance: HYDROCORTISONE
     Indication: BURKITT^S LEUKAEMIA
     Route: 037

REACTIONS (13)
  - Loss of proprioception [Unknown]
  - Abasia [Unknown]
  - Dysphagia [Unknown]
  - Respiratory failure [Fatal]
  - Pneumonia [Unknown]
  - Ataxia [Unknown]
  - Muscular weakness [Unknown]
  - Myelopathy [Unknown]
  - Cranial nerve paralysis [Unknown]
  - Paraesthesia [Unknown]
  - VIIth nerve paralysis [Unknown]
  - Hypoaesthesia [Unknown]
  - Urinary tract disorder [Unknown]
